FAERS Safety Report 5118002-9 (Version None)
Quarter: 2006Q3

REPORT INFORMATION
  Report Type: 
  Country: None (occurrence: None)
  Receive Date: 20060926
  Receipt Date: 20060913
  Transmission Date: 20061208
  Serious: Yes (Hospitalization, Disabling)
  Sender: FDA-Public Use
  Company Number: 2006086148

PATIENT
  Age: 51 Year
  Sex: Male
  Weight: 117 kg

DRUGS (4)
  1. SUTENT [Suspect]
     Indication: METASTATIC RENAL CELL CARCINOMA
     Dosage: 37.5 MG (1 IN 1 D) ORAL
     Route: 048
     Dates: start: 20060519, end: 20060708
  2. BISOPROLOL FUMARATE [Concomitant]
  3. LOCOL (FLUVASTATIN SODIUM) [Concomitant]
  4. ALLOPURINOL [Concomitant]

REACTIONS (1)
  - MACULAR OEDEMA [None]
